FAERS Safety Report 5558496-8 (Version None)
Quarter: 2007Q4

REPORT INFORMATION
  Report Type: 
  Country: None (occurrence: None)
  Receive Date: 20071214
  Receipt Date: 20071203
  Transmission Date: 20080405
  Serious: Yes (Hospitalization, Other)
  Sender: FDA-Public Use
  Company Number: DE-PFIZER INC-2007102496

PATIENT
  Age: 79 Year
  Sex: Female

DRUGS (1)
  1. PREGABALIN [Suspect]
     Indication: BACK PAIN
     Dosage: DAILY DOSE:300MG

REACTIONS (3)
  - ENCEPHALOPATHY [None]
  - GRAND MAL CONVULSION [None]
  - MYOCLONIC EPILEPSY [None]
